FAERS Safety Report 7536166-4 (Version None)
Quarter: 2011Q2

REPORT INFORMATION
  Report Type: 
  Country: None (occurrence: None)
  Receive Date: 20110602
  Receipt Date: 20110520
  Transmission Date: 20111010
  Serious: Yes (Hospitalization, Other)
  Sender: FDA-Public Use
  Company Number: 2011P1006694

PATIENT
  Age: 55 Year
  Sex: Female

DRUGS (5)
  1. LEUCOVORIN CALCIUM [Suspect]
     Indication: CEREBRAL TOXOPLASMOSIS
     Dosage: 25 MG; PO
     Route: 048
     Dates: start: 20101023
  2. LEVETIRACETAM [Suspect]
     Indication: EPILEPSY
     Dosage: 500 MG; BID; PO
     Route: 048
     Dates: start: 20101026
  3. SULFADIAZINE [Suspect]
     Indication: CEREBRAL TOXOPLASMOSIS
     Dosage: 500 MG; Q3H; PO
     Route: 048
     Dates: start: 20101023, end: 20101101
  4. DARAPRIM [Suspect]
     Indication: CEREBRAL TOXOPLASMOSIS
     Dosage: 50 MG; PO
     Route: 048
     Dates: start: 20101023
  5. URBANYL (CLOBAZAM) (NO PREF. NAME) [Suspect]
     Indication: EPILEPSY
     Dosage: 5 MG; PO
     Route: 048
     Dates: start: 20101025

REACTIONS (4)
  - LEUKOPENIA [None]
  - CYTOLYTIC HEPATITIS [None]
  - NEUTROPENIA [None]
  - PYREXIA [None]
